FAERS Safety Report 8421779-8 (Version None)
Quarter: 2012Q2

REPORT INFORMATION
  Report Type: 
  Country: None (occurrence: None)
  Receive Date: 20120608
  Receipt Date: 20120529
  Transmission Date: 20120825
  Serious: Yes (Hospitalization)
  Sender: FDA-Public Use
  Company Number: FR-ALLERGAN-1207497US

PATIENT
  Age: 7 Year
  Sex: Female
  Weight: 19 kg

DRUGS (8)
  1. BOTOX [Suspect]
     Dosage: 140 UNK, UNK
     Dates: start: 20090916, end: 20090916
  2. BOTOX [Suspect]
     Indication: CEREBRAL PALSY
     Dosage: 200 UNITS, SINGLE
     Route: 030
     Dates: start: 20111118, end: 20111118
  3. BOTOX [Suspect]
     Dosage: 180 UNK, UNK
     Dates: start: 20110513, end: 20110513
  4. BOTOX [Suspect]
     Dosage: 80 UNK, UNK
     Dates: start: 20070625, end: 20070625
  5. BOTOX [Suspect]
     Dosage: 160 UNK, UNK
     Dates: start: 20100218, end: 20100218
  6. BOTOX [Suspect]
     Dosage: 110 UNK, UNK
     Dates: start: 20080709, end: 20080709
  7. BOTOX [Suspect]
     Dosage: 170 UNK, UNK
     Dates: start: 20101015, end: 20101015
  8. BOTOX [Suspect]
     Dosage: 130 UNK, UNK
     Dates: start: 20090204, end: 20090204

REACTIONS (1)
  - HENOCH-SCHONLEIN PURPURA [None]
